FAERS Safety Report 13254451 (Version 1)
Quarter: 2017Q1

REPORT INFORMATION
  Report Type: Report from Study
  Country: US (occurrence: US)
  Receive Date: 20170221
  Receipt Date: 20170221
  Transmission Date: 20170428
  Serious: Yes (Other)
  Sender: FDA-Public Use
  Company Number: US-CONCORDIA PHARMACEUTICALS INC.-GSH201702-001045

PATIENT
  Sex: Female

DRUGS (4)
  1. HUMIRA [Suspect]
     Active Substance: ADALIMUMAB
     Route: 058
     Dates: start: 20160910
  2. HUMIRA [Suspect]
     Active Substance: ADALIMUMAB
     Indication: RHEUMATOID ARTHRITIS
     Route: 058
     Dates: start: 2013, end: 201603
  3. PLAQUENIL [Suspect]
     Active Substance: HYDROXYCHLOROQUINE SULFATE
     Indication: RHEUMATOID ARTHRITIS
     Route: 065
  4. NAPROXEN. [Concomitant]
     Active Substance: NAPROXEN
     Indication: PAIN

REACTIONS (13)
  - Squamous cell carcinoma [Unknown]
  - Device issue [Unknown]
  - Visual impairment [Unknown]
  - Joint swelling [Not Recovered/Not Resolved]
  - Injection site pain [Recovered/Resolved]
  - Peripheral swelling [Not Recovered/Not Resolved]
  - Arthralgia [Not Recovered/Not Resolved]
  - Joint stiffness [Not Recovered/Not Resolved]
  - Injection site haemorrhage [Recovered/Resolved]
  - Musculoskeletal stiffness [Not Recovered/Not Resolved]
  - Injection site bruising [Recovered/Resolved]
  - Sinusitis [Unknown]
  - Pain in extremity [Not Recovered/Not Resolved]

NARRATIVE: CASE EVENT DATE: 2013
